FAERS Safety Report 10419967 (Version 5)
Quarter: 2014Q4

REPORT INFORMATION
  Report Type: Spontaneous
  Country: CN (occurrence: CN)
  Receive Date: 20140829
  Receipt Date: 20141110
  Transmission Date: 20150528
  Serious: Yes (Other)
  Sender: FDA-Public Use
  Company Number: ALCN2014CN004665

PATIENT
  Age: 54 Year
  Sex: Female
  Weight: 52 kg

DRUGS (1)
  1. FLUORESCITE [Suspect]
     Active Substance: D+C YELLOW NO. 8
     Indication: ANGIOGRAM RETINA
     Dosage: 4 ML, ANGIOGRAPHY
     Route: 065
     Dates: start: 20140813, end: 20140813

REACTIONS (3)
  - Type IV hypersensitivity reaction [None]
  - Drug hypersensitivity [Recovered/Resolved]
  - Seizure [None]

NARRATIVE: CASE EVENT DATE: 20140813
